FAERS Safety Report 14413781 (Version 1)
Quarter: 2018Q1

REPORT INFORMATION
  Report Type: Spontaneous
  Country: US (occurrence: US)
  Receive Date: 20180117
  Receipt Date: 20180117
  Transmission Date: 20180509
  Serious: Yes (Death)
  Sender: FDA-Public Use
  Company Number: None

PATIENT
  Age: 73 Year
  Sex: Female

DRUGS (1)
  1. TOBRAMYCIN 300MG/5ML AMNEAL [Suspect]
     Active Substance: TOBRAMYCIN
     Indication: CYSTIC FIBROSIS
     Dosage: 1 AMPULE TWICE DAILY INHALED
     Route: 055
     Dates: start: 20160424, end: 201703

REACTIONS (1)
  - Death [None]

NARRATIVE: CASE EVENT DATE: 20171017
